FAERS Safety Report 18438268 (Version 2)
Quarter: 2021Q1

REPORT INFORMATION
  Report Type: Spontaneous
  Country: US (occurrence: US)
  Receive Date: 20201028
  Receipt Date: 20210104
  Transmission Date: 20210419
  Serious: No
  Sender: FDA-Public Use
  Company Number: US-ROCHE-2668057

PATIENT
  Sex: Female
  Weight: 68.1 kg

DRUGS (3)
  1. ALTEPLASE. [Suspect]
     Active Substance: ALTEPLASE
  2. IVIGLOB EX [Concomitant]
     Active Substance: HUMAN IMMUNOGLOBULIN G
     Indication: MULTIPLE SCLEROSIS
     Route: 042
     Dates: start: 201405
  3. ALTEPLASE. [Suspect]
     Active Substance: ALTEPLASE
     Indication: PRODUCT USED FOR UNKNOWN INDICATION
     Dosage: PRN ;ONGOING: YES
     Route: 042
     Dates: start: 20200824

REACTIONS (2)
  - No adverse event [Unknown]
  - Intercepted product storage error [Unknown]
